FAERS Safety Report 20671462 (Version 2)
Quarter: 2022Q2

REPORT INFORMATION
  Report Type: Report from Study
  Country: US (occurrence: US)
  Receive Date: 20220404
  Receipt Date: 20220415
  Transmission Date: 20220721
  Serious: Yes (Other)
  Sender: FDA-Public Use
  Company Number: US-SEATTLE GENETICS-2022SGN03204

PATIENT
  Age: 40 Year
  Sex: Female

DRUGS (1)
  1. TUCATINIB [Suspect]
     Active Substance: TUCATINIB
     Indication: Breast cancer female
     Dosage: UNK
     Route: 065

REACTIONS (16)
  - Brain neoplasm malignant [Unknown]
  - Illness [Unknown]
  - Memory impairment [Unknown]
  - Constipation [Unknown]
  - Insomnia [Unknown]
  - Depression [Unknown]
  - Headache [Unknown]
  - Swelling [Unknown]
  - Alopecia [Unknown]
  - Pruritus [Unknown]
  - Lumbar puncture [Unknown]
  - Palpitations [Unknown]
  - Back pain [Unknown]
  - Platelet count abnormal [Unknown]
  - Dehydration [Unknown]
  - Erythema [Unknown]

NARRATIVE: CASE EVENT DATE: 20220331
